FAERS Safety Report 7542422-6 (Version None)
Quarter: 2011Q2

REPORT INFORMATION
  Report Type: 
  Country: None (occurrence: None)
  Receive Date: 20110606
  Receipt Date: 20110527
  Transmission Date: 20111010
  Serious: Yes (Other)
  Sender: FDA-Public Use
  Company Number: 2011SP014130

PATIENT
  Age: 32 Year
  Sex: Male

DRUGS (7)
  1. LUNESTA [Concomitant]
  2. KLONOPIN [Concomitant]
  3. CELEXA [Concomitant]
  4. SAPHRIS [Suspect]
     Indication: SCHIZOAFFECTIVE DISORDER
     Dosage: 5 MG;BID;PO 10MG;HS;PO 20 MG;HS;PO
     Route: 048
     Dates: start: 20110412, end: 20110415
  5. SAPHRIS [Suspect]
     Indication: SCHIZOAFFECTIVE DISORDER
     Dosage: 5 MG;BID;PO 10MG;HS;PO 20 MG;HS;PO
     Route: 048
     Dates: start: 20110308, end: 20110319
  6. SAPHRIS [Suspect]
     Indication: SCHIZOAFFECTIVE DISORDER
     Dosage: 5 MG;BID;PO 10MG;HS;PO 20 MG;HS;PO
     Route: 048
     Dates: start: 20110319, end: 20110411
  7. RISPERDAL [Concomitant]

REACTIONS (7)
  - BLOOD GLUCOSE INCREASED [None]
  - PARANOIA [None]
  - WHITE BLOOD CELL COUNT DECREASED [None]
  - NEUTROPHIL COUNT DECREASED [None]
  - FATIGUE [None]
  - ANXIETY [None]
  - ALANINE AMINOTRANSFERASE INCREASED [None]
